FAERS Safety Report 26174877 (Version 1)
Quarter: 2025Q4

REPORT INFORMATION
  Report Type: Spontaneous
  Country: CN (occurrence: CN)
  Receive Date: 20251218
  Receipt Date: 20251218
  Transmission Date: 20260119
  Serious: Yes (Life-Threatening, Other)
  Sender: BAYER HEALTHCARE PHARMACEUTICALS INC.
  Company Number: CN-BAYER-2025A165676

PATIENT
  Age: 35 Year
  Sex: Male
  Weight: 66 kg

DRUGS (2)
  1. ULTRAVIST [Suspect]
     Active Substance: IOPROMIDE
     Indication: Computerised tomogram abdomen
     Dosage: 60 ML, ONCE
     Route: 042
     Dates: start: 20251117, end: 20251117
  2. ULTRAVIST [Suspect]
     Active Substance: IOPROMIDE
     Indication: Computerised tomogram thorax

REACTIONS (6)
  - Anaphylactic shock [Recovering/Resolving]
  - Amaurosis fugax [None]
  - Altered state of consciousness [Recovering/Resolving]
  - Pruritus [Recovering/Resolving]
  - Nausea [Recovering/Resolving]
  - Vomiting [Recovering/Resolving]

NARRATIVE: CASE EVENT DATE: 20251117
